FAERS Safety Report 7539767-2 (Version None)
Quarter: 2011Q2

REPORT INFORMATION
  Report Type: 
  Country: None (occurrence: None)
  Receive Date: 20110610
  Receipt Date: 20110603
  Transmission Date: 20111010
  Serious: Yes (Hospitalization, Other)
  Sender: FDA-Public Use
  Company Number: BR-PFIZER INC-2011066752

PATIENT
  Age: 38 Year
  Sex: Female
  Weight: 42 kg

DRUGS (19)
  1. ZYPREXA [Concomitant]
     Indication: DEPRESSION
     Dosage: 2 MG, 1X/DAY
     Dates: start: 20030101
  2. CLONAZEPAM [Concomitant]
     Indication: BIPOLAR DISORDER
  3. ZYPREXA [Concomitant]
     Indication: BIPOLAR DISORDER
  4. AMPLICTIL [Concomitant]
     Indication: DEPRESSION
     Dosage: 100 MG, 1X/DAY
     Dates: start: 20030101
  5. LEVOTHYROXINE SODIUM [Concomitant]
     Indication: HYPERTHYROIDISM
     Dosage: 50 MG, 1X/DAY
     Dates: start: 20070101
  6. AMPLICTIL [Concomitant]
     Indication: BIPOLAR DISORDER
  7. AMPLICTIL [Concomitant]
     Indication: PANIC DISORDER
  8. RAZAPINA [Concomitant]
     Indication: DEPRESSION
     Dosage: 30 MG, 1X/DAY
     Dates: start: 20030101
  9. VARENICLINE TARTRATE [Suspect]
     Indication: TOBACCO USER
     Dosage: UNK
     Route: 048
     Dates: start: 20110225, end: 20110101
  10. ALENTHUS XR [Concomitant]
     Indication: DEPRESSION
  11. CLONAZEPAM [Concomitant]
     Indication: DEPRESSION
     Dosage: 2 MG, 1X/DAY
     Dates: start: 20030101
  12. OMEPRAZOLE [Concomitant]
     Indication: POLYMEDICATION
     Dosage: 20 MG, UNK
  13. ALENTHUS XR [Concomitant]
     Indication: BIPOLAR DISORDER
     Dosage: 150 MG, 1X/DAY
     Dates: start: 20030101
  14. RAZAPINA [Concomitant]
     Indication: BIPOLAR DISORDER
  15. RAZAPINA [Concomitant]
     Indication: PANIC DISORDER
  16. VARENICLINE TARTRATE [Suspect]
     Dosage: 1 MG, 2X/DAY
     Route: 048
     Dates: start: 20110101, end: 20110101
  17. ZYPREXA [Concomitant]
     Indication: PANIC DISORDER
  18. CLONAZEPAM [Concomitant]
     Indication: PANIC DISORDER
  19. ALENTHUS XR [Concomitant]
     Indication: PANIC DISORDER

REACTIONS (7)
  - NAUSEA [None]
  - DEPRESSION [None]
  - CRYING [None]
  - VOMITING [None]
  - WEIGHT DECREASED [None]
  - EATING DISORDER [None]
  - WEIGHT INCREASED [None]
